FAERS Safety Report 9884022 (Version 1)
Quarter: 2014Q1

REPORT INFORMATION
  Report Type: Spontaneous
  Country: US (occurrence: US)
  Receive Date: 20140210
  Receipt Date: 20140210
  Transmission Date: 20141002
  Serious: No
  Sender: FDA-Public Use
  Company Number: US-ALLERGAN-1316579US

PATIENT
  Sex: Female

DRUGS (1)
  1. BOTOX [Suspect]
     Indication: VAGINISMUS
     Dosage: UNK
     Dates: start: 20131007, end: 20131007

REACTIONS (3)
  - Diplopia [Unknown]
  - Visual impairment [Unknown]
  - Off label use [Unknown]
